FAERS Safety Report 22177259 (Version 2)
Quarter: 2023Q2

REPORT INFORMATION
  Report Type: Report from Study
  Country: FR (occurrence: None)
  Receive Date: 20230405
  Receipt Date: 20230615
  Transmission Date: 20230722
  Serious: Yes (Hospitalization)
  Sender: FDA-Public Use
  Company Number: 2023A038369

PATIENT
  Age: 62 Year
  Sex: Male
  Weight: 70 kg

DRUGS (17)
  1. OLAPARIB [Suspect]
     Active Substance: OLAPARIB
     Indication: Non-small cell lung cancer stage III
     Dosage: UNK
     Route: 048
     Dates: start: 20230111, end: 20230131
  2. OLAPARIB [Suspect]
     Active Substance: OLAPARIB
     Indication: Non-small cell lung cancer stage III
     Dosage: UNK
     Route: 048
     Dates: start: 20230201, end: 20230201
  3. OLAPARIB [Suspect]
     Active Substance: OLAPARIB
     Indication: Non-small cell lung cancer stage III
     Dosage: UNK
     Route: 048
     Dates: start: 20230222
  4. OLAPARIB [Suspect]
     Active Substance: OLAPARIB
     Indication: Non-small cell lung cancer stage III
     Dosage: UNK
     Route: 048
     Dates: start: 20230406
  5. PEMBROLIZUMAB [Suspect]
     Active Substance: PEMBROLIZUMAB
     Indication: Non-small cell lung cancer stage III
     Dosage: 200 MILLIGRAM, Q3W
     Route: 042
     Dates: start: 20221017, end: 20221130
  6. PEMBROLIZUMAB [Suspect]
     Active Substance: PEMBROLIZUMAB
     Indication: Non-small cell lung cancer stage III
     Dosage: 200 MILLIGRAM, Q3W
     Route: 042
     Dates: start: 20230111, end: 20230111
  7. PEMBROLIZUMAB [Suspect]
     Active Substance: PEMBROLIZUMAB
     Indication: Non-small cell lung cancer stage III
     Dosage: 200 MILLIGRAM, Q3W
     Route: 042
     Dates: start: 20230201
  8. PEMBROLIZUMAB [Suspect]
     Active Substance: PEMBROLIZUMAB
     Indication: Non-small cell lung cancer stage III
     Dosage: 200 MILLIGRAM, Q3W
     Route: 042
     Dates: start: 20230405
  9. CISPLATIN [Suspect]
     Active Substance: CISPLATIN
     Indication: Non-small cell lung cancer stage III
     Dosage: UNK, Q3W
     Route: 042
     Dates: start: 20221017, end: 20221130
  10. PEMETREXED [Suspect]
     Active Substance: PEMETREXED
     Indication: Non-small cell lung cancer stage III
     Dosage: UNK, Q3W
     Route: 042
     Dates: start: 20221017, end: 20221130
  11. SODIUM ALGINATE [Concomitant]
     Active Substance: SODIUM ALGINATE
     Indication: Gastrooesophageal reflux prophylaxis
     Dosage: [1] 500 MG, PRN
     Route: 048
     Dates: start: 202109
  12. SERTRALINE HYDROCHLORIDE [Concomitant]
     Active Substance: SERTRALINE HYDROCHLORIDE
     Indication: Stress
     Dosage: [2] 50 MG DAILY, FREQ: QD
     Route: 048
     Dates: start: 202101
  13. FOLIC ACID [Concomitant]
     Active Substance: FOLIC ACID
     Indication: Prophylaxis
     Dosage: [5] 0.4 MG DAILY, FREQ: QD
     Route: 048
     Dates: start: 20221011
  14. CYANOCOBALAMIN [Concomitant]
     Active Substance: CYANOCOBALAMIN
     Indication: Prophylaxis
     Dosage: [6] 1000 UG DAILY, FREQ: OTHER, FORMULATION: SOLUTION
     Route: 030
     Dates: start: 20221011
  15. ARANESP [Concomitant]
     Active Substance: DARBEPOETIN ALFA
     Indication: Anaemia
     Dosage: [17] 500 U DAILY, FREQ: OTHER, FORMULATION: SOLUTION
     Route: 058
     Dates: start: 20221130
  16. PLATELETS [Concomitant]
     Active Substance: HUMAN PLATELET, ALLOGENIC
     Indication: Thrombocytopenia
     Dosage: [30] 1 U DAILY, FREQ: ONCE, FORMULATION: SOLUTION1.0DF ONCE/SINGLE ADMINISTRATION
     Route: 042
     Dates: start: 20230120, end: 20230120
  17. FLUCONAZOLE [Concomitant]
     Active Substance: FLUCONAZOLE
     Indication: Mucosal inflammation
     Dosage: [35] 50 ML DAILY, FREQ: QD, FORMULATION: SOLUTION
     Route: 042
     Dates: start: 20221227

REACTIONS (1)
  - White blood cell count decreased [Recovered/Resolved]

NARRATIVE: CASE EVENT DATE: 20230130
